FAERS Safety Report 13256228 (Version 2)
Quarter: 2017Q1

REPORT INFORMATION
  Report Type: Spontaneous
  Country: FR (occurrence: FR)
  Receive Date: 20170221
  Receipt Date: 20170309
  Transmission Date: 20170428
  Serious: Yes (Death, Hospitalization, Other)
  Sender: FDA-Public Use
  Company Number: FR-PFIZER INC-2017073107

PATIENT
  Age: 79 Year
  Sex: Male

DRUGS (3)
  1. ROVAMYCINE [Interacting]
     Active Substance: SPIRAMYCIN
     Indication: PNEUMONIA
     Dosage: 1.5 MILLION INTERNATIONAL UNITS, 3X/DAY
     Route: 042
     Dates: start: 20161122, end: 20161122
  2. CORDARONE [Suspect]
     Active Substance: AMIODARONE HYDROCHLORIDE
     Indication: ATRIAL FIBRILLATION
     Dosage: 1 DF, DAILY
     Route: 048
     Dates: start: 2008, end: 20161125
  3. TERCIAN [Interacting]
     Active Substance: CYAMEMAZINE
     Indication: AGITATION
     Dosage: 50 MG, DAILY
     Route: 042
     Dates: start: 20161125, end: 20161125

REACTIONS (14)
  - Cardio-respiratory arrest [Unknown]
  - Pneumonia [Unknown]
  - Condition aggravated [Unknown]
  - Somnolence [Unknown]
  - Drug interaction [Fatal]
  - Contraindicated product administered [Fatal]
  - Hypotension [Unknown]
  - Confusional state [Unknown]
  - Interstitial lung disease [Not Recovered/Not Resolved]
  - Agitation [Not Recovered/Not Resolved]
  - Sudden death [Fatal]
  - Dehydration [Unknown]
  - Chronic obstructive pulmonary disease [Unknown]
  - Electrocardiogram QT prolonged [Unknown]

NARRATIVE: CASE EVENT DATE: 20160922
